FAERS Safety Report 6665539-7 (Version None)
Quarter: 2010Q1

REPORT INFORMATION
  Report Type: 
  Country: None (occurrence: None)
  Receive Date: 20100330
  Receipt Date: 20100318
  Transmission Date: 20100710
  Serious: Yes (Other)
  Sender: FDA-Public Use
  Company Number: 230130M10USA

PATIENT
  Age: 53 Year
  Sex: Male

DRUGS (11)
  1. REBIF [Suspect]
     Indication: MULTIPLE SCLEROSIS
     Dosage: SUBCUTANEOUS
     Route: 058
     Dates: start: 20060801, end: 20100127
  2. TOPROL-XL [Concomitant]
  3. VERAPAMIL SR (VERAPAMIL) [Concomitant]
  4. WELLBUTRIN SR [Concomitant]
  5. PROLIXIN [Concomitant]
  6. LASIX [Concomitant]
  7. ALBUTEROL [Concomitant]
  8. COLACE (DOCUSATE SODIUM) [Concomitant]
  9. HYDROCHLOROTHIAZIDE [Concomitant]
  10. LISIINOPRIL (LISINOPRIL) [Concomitant]
  11. VALIUM [Concomitant]

REACTIONS (1)
  - LUNG NEOPLASM MALIGNANT [None]
